FAERS Safety Report 17769519 (Version 1)
Quarter: 2020Q2

REPORT INFORMATION
  Report Type: Spontaneous
  Country: US (occurrence: US)
  Receive Date: 20200512
  Receipt Date: 20200512
  Transmission Date: 20200714
  Serious: No
  Sender: FDA-Public Use
  Company Number: US-JNJFOC-20200511864

PATIENT
  Sex: Male

DRUGS (6)
  1. PREDNISONE. [Concomitant]
     Active Substance: PREDNISONE
  2. VITAMIN C [Concomitant]
     Active Substance: ASCORBIC ACID
  3. CRESTOR [Concomitant]
     Active Substance: ROSUVASTATIN CALCIUM
  4. ZYTIGA [Suspect]
     Active Substance: ABIRATERONE ACETATE
     Indication: PRODUCT USED FOR UNKNOWN INDICATION
     Route: 048
  5. ASPRIN [Concomitant]
     Active Substance: ASPIRIN
     Dosage: LOW DOSE
  6. ZOLADEX [Concomitant]
     Active Substance: GOSERELIN ACETATE

REACTIONS (1)
  - Weight decreased [Unknown]
